FAERS Safety Report 4597941-1 (Version None)
Quarter: 2005Q1

REPORT INFORMATION
  Report Type: 
  Country: None (occurrence: None)
  Receive Date: 20050301
  Receipt Date: 20050223
  Transmission Date: 20050727
  Serious: Yes (Disabling)
  Sender: FDA-Public Use
  Company Number: 211922

PATIENT
  Sex: Male

DRUGS (1)
  1. XOLAIR [Suspect]
     Indication: ASTHMA
     Dosage: 150 MG, 2/MONTH, SUBCUTANEOUS
     Route: 058
     Dates: start: 20040707

REACTIONS (2)
  - DEAFNESS TRANSITORY [None]
  - TINNITUS [None]
